FAERS Safety Report 6208564-2 (Version None)
Quarter: 2009Q2

REPORT INFORMATION
  Report Type: 
  Country: None (occurrence: None)
  Receive Date: 20090522
  Receipt Date: 20090217
  Transmission Date: 20091009
  Serious: No
  Sender: FDA-Public Use
  Company Number: 8043210

PATIENT
  Age: 60 Year
  Sex: Female
  Weight: 49.8 kg

DRUGS (10)
  1. CIMZIA [Suspect]
     Indication: CROHN'S DISEASE
     Dosage: 400 MG SC
     Route: 058
     Dates: start: 20080801, end: 20080801
  2. CIMZIA [Suspect]
     Indication: CROHN'S DISEASE
     Dosage: 400 MG SC
     Route: 058
     Dates: start: 20090130
  3. ACTOS [Concomitant]
  4. ASPIRIN [Concomitant]
  5. CENTRUM SILVER [Concomitant]
  6. CALCIUM PLUS [Concomitant]
  7. VITAMIN D [Concomitant]
  8. SYNTHROID [Concomitant]
  9. ACTONEL [Concomitant]
  10. FLORASTOR [Concomitant]

REACTIONS (4)
  - DIARRHOEA [None]
  - FLATULENCE [None]
  - HAEMORRHOIDS [None]
  - HYPERSOMNIA [None]
